FAERS Safety Report 5609074-3 (Version None)
Quarter: 2008Q1

REPORT INFORMATION
  Report Type: 
  Country: None (occurrence: None)
  Receive Date: 20080130
  Receipt Date: 20080130
  Transmission Date: 20080703
  Serious: Yes (Other)
  Sender: FDA-Public Use
  Company Number: None

PATIENT
  Sex: Female
  Weight: 52.1637 kg

DRUGS (1)
  1. FORTEO [Suspect]
     Dosage: INJECT 20MCG SUBCUTANEOUSLY EVERY DAY AS DIRECTED
     Route: 058
     Dates: start: 20070912

REACTIONS (1)
  - GRAND MAL CONVULSION [None]
